FAERS Safety Report 7651012-6 (Version None)
Quarter: 2011Q3

REPORT INFORMATION
  Report Type: 
  Country: None (occurrence: None)
  Receive Date: 20110802
  Receipt Date: 20110729
  Transmission Date: 20111222
  Serious: Yes (Other)
  Sender: FDA-Public Use
  Company Number: US-PFIZER INC-2011173639

PATIENT
  Sex: Female
  Weight: 54.4 kg

DRUGS (3)
  1. LYRICA [Suspect]
     Indication: ILL-DEFINED DISORDER
     Dosage: 100 MG, 3X/DAY
     Route: 048
     Dates: start: 20110726, end: 20110729
  2. SOMA [Concomitant]
     Dosage: UNK
  3. HYDROCODONE [Concomitant]
     Dosage: UNK

REACTIONS (8)
  - FALL [None]
  - DEPRESSED LEVEL OF CONSCIOUSNESS [None]
  - DIZZINESS [None]
  - BALANCE DISORDER [None]
  - DRUG INTOLERANCE [None]
  - MUSCULAR WEAKNESS [None]
  - VISION BLURRED [None]
  - DISTURBANCE IN ATTENTION [None]
